FAERS Safety Report 8250566-9 (Version None)
Quarter: 2012Q2

REPORT INFORMATION
  Report Type: 
  Country: None (occurrence: None)
  Receive Date: 20120402
  Receipt Date: 20120402
  Transmission Date: 20120825
  Serious: Yes (Other)
  Sender: FDA-Public Use
  Company Number: None

PATIENT
  Age: 9 Year
  Sex: Male
  Weight: 31.751 kg

DRUGS (1)
  1. ZYRTEC [Suspect]
     Indication: MIDDLE EAR EFFUSION
     Dosage: 10MG
     Route: 048
     Dates: start: 20120222, end: 20120319

REACTIONS (6)
  - DRUG WITHDRAWAL SYNDROME [None]
  - RASH [None]
  - PRURITUS GENERALISED [None]
  - SCREAMING [None]
  - BITE [None]
  - SCRATCH [None]
